FAERS Safety Report 4315874-2 (Version None)
Quarter: 2004Q1

REPORT INFORMATION
  Report Type: 
  Country: None (occurrence: None)
  Receive Date: 20040310
  Receipt Date: 20040225
  Transmission Date: 20041129
  Serious: Yes (Hospitalization)
  Sender: FDA-Public Use
  Company Number: 04P-163-0252300-00

PATIENT
  Age: 60 Year
  Sex: Male

DRUGS (12)
  1. MAVIK [Suspect]
     Indication: HYPERTENSION
     Dosage: SEE IMAGE
     Dates: start: 20000811, end: 20001215
  2. MAVIK [Suspect]
     Indication: HYPERTENSION
     Dosage: SEE IMAGE
     Dates: start: 20001215, end: 20010511
  3. MAVIK [Suspect]
     Indication: HYPERTENSION
     Dosage: SEE IMAGE
     Dates: start: 20010511
  4. MAVIK [Suspect]
     Indication: HYPERTENSION
     Dosage: SEE IMAGE
     Dates: start: 20011116
  5. HYDROCHLOROTHIAZIDE [Suspect]
     Indication: HYPERTENSION
     Dosage: SEE IMAGE
     Dates: start: 20000811, end: 20001215
  6. HYDROCHLOROTHIAZIDE [Suspect]
     Indication: HYPERTENSION
     Dosage: SEE IMAGE
     Dates: start: 20001215, end: 20010511
  7. HYDROCHLOROTHIAZIDE [Suspect]
     Indication: HYPERTENSION
     Dosage: SEE IMAGE
     Dates: start: 20010511
  8. HYDROCHLOROTHIAZIDE [Suspect]
     Indication: HYPERTENSION
     Dosage: SEE IMAGE
     Dates: start: 20011116
  9. LORAZEPAM [Concomitant]
  10. OXYCOCET [Concomitant]
  11. GUAIFENESIN [Concomitant]
  12. ISOSORBIDE MONONITRATE [Concomitant]

REACTIONS (3)
  - BLOOD POTASSIUM INCREASED [None]
  - BRONCHOSPASM [None]
  - RESPIRATORY TRACT CONGESTION [None]
